FAERS Safety Report 8828861 (Version 1)
Quarter: 2012Q4

REPORT INFORMATION
  Report Type: 
  Country: US (occurrence: US)
  Receive Date: 20121008
  Receipt Date: 20121008
  Transmission Date: 20130627
  Serious: No
  Sender: FDA-Public Use
  Company Number: US-ASTRAZENECA-2001UW11373

PATIENT
  Age: 84 Year
  Sex: Female
  Weight: 86.2 kg

DRUGS (4)
  1. CRESTOR [Suspect]
     Route: 048
  2. TAMOXIFEN [Suspect]
     Indication: BREAST CANCER IN SITU
     Route: 048
  3. ZIAC [Concomitant]
  4. AVAPRO [Concomitant]

REACTIONS (2)
  - Spinal column stenosis [Unknown]
  - Hot flush [Unknown]
